FAERS Safety Report 5283269-3 (Version None)
Quarter: 2007Q1

REPORT INFORMATION
  Report Type: 
  Country: None (occurrence: None)
  Receive Date: 20070327
  Receipt Date: 20070313
  Transmission Date: 20070707
  Serious: Yes (Other)
  Sender: FDA-Public Use
  Company Number: 430006N07JPN

PATIENT
  Age: 35 Year
  Sex: Male

DRUGS (13)
  1. NOVANTRONE [Suspect]
     Dates: start: 20060324, end: 20060328
  2. MYLOTARG [Suspect]
     Dosage: 9 MG/M2 1 IN 1 DAYS, INTRAVENOUS (NOT OTHERWISE SPECIFIED)
     Route: 042
     Dates: start: 20060111, end: 20060111
  3. MYLOTARG [Suspect]
     Dosage: 9 MG/M2 1 IN 1 DAYS, INTRAVENOUS (NOT OTHERWISE SPECIFIED)
     Route: 042
     Dates: start: 20060125, end: 20060125
  4. CYTARABINE [Suspect]
     Dosage: INTRAVENOUS (NOT OTHERWISE SPECIFIED)
     Route: 042
     Dates: start: 20050324, end: 20060328
  5. ETOPOSIDE [Suspect]
     Dosage: INTRAVENOUS (NOT OTHERWISE SPECIFIED)
     Route: 042
     Dates: start: 20060324, end: 20060328
  6. FLUCONAZOLE [Concomitant]
  7. ROXATIDINE ACETATE HCL [Concomitant]
  8. REBAMIPIDE [Concomitant]
  9. ALLOPURINOL [Concomitant]
  10. BACILLUS SUBTILIS [Concomitant]
  11. PARACETAMOL [Concomitant]
  12. DIPHENHYDRAMINE HCL [Concomitant]
  13. HYDROCORTISONE SODIUM SUCCINATE [Concomitant]

REACTIONS (3)
  - DISEASE PROGRESSION [None]
  - SEPSIS [None]
  - WEIGHT INCREASED [None]
